FAERS Safety Report 18678037 (Version 3)
Quarter: 2021Q1

REPORT INFORMATION
  Report Type: Spontaneous
  Country: US (occurrence: US)
  Receive Date: 20201229
  Receipt Date: 20210129
  Transmission Date: 20210419
  Serious: No
  Sender: FDA-Public Use
  Company Number: US-PFIZER INC-2020281251

PATIENT
  Age: 76 Year
  Sex: Male
  Weight: 68.04 kg

DRUGS (3)
  1. INLYTA [Suspect]
     Active Substance: AXITINIB
     Indication: NEOPLASM MALIGNANT
     Dosage: 6 MG (1 MG 3 TABLETS TWICE A DAY), 1X/DAY
     Route: 048
     Dates: start: 2020
  2. INLYTA [Suspect]
     Active Substance: AXITINIB
     Dosage: 5 MG, 2X/DAY
     Route: 048
     Dates: start: 2020, end: 2020
  3. FLOMAX [Concomitant]
     Active Substance: TAMSULOSIN HYDROCHLORIDE
     Dosage: UNK, 1X/DAY [0.04 ONCE A DAY IN THE MORNING]

REACTIONS (4)
  - Pruritus [Not Recovered/Not Resolved]
  - Product label issue [Unknown]
  - Hypertension [Unknown]
  - COVID-19 [Unknown]

NARRATIVE: CASE EVENT DATE: 2020
